FAERS Safety Report 10669321 (Version 1)
Quarter: 2014Q4

REPORT INFORMATION
  Report Type: Spontaneous
  Country: JM (occurrence: JP)
  Receive Date: 20141222
  Receipt Date: 20141222
  Transmission Date: 20150529
  Serious: Yes (Other)
  Sender: FDA-Public Use
  Company Number: JP-TEVA-530311ISR

PATIENT
  Age: 83 Year
  Sex: Male
  Weight: 47 kg

DRUGS (9)
  1. MAGMITT TAB 330 [Concomitant]
     Indication: PRODUCT USED FOR UNKNOWN INDICATION
     Dosage: DOSAGE AND FREQUENCY UNKNOWN
     Route: 048
  2. DIART TAB. 30MG [Concomitant]
     Indication: PRODUCT USED FOR UNKNOWN INDICATION
     Dosage: DOSAGE AND FREQUENCY UNKNOWN
     Route: 048
  3. LANSOPRAZOLE-OD TAB 15MG [Concomitant]
     Indication: PRODUCT USED FOR UNKNOWN INDICATION
     Dosage: DOSAGE AND FREQUENCY UNKNOWN
     Route: 048
  4. GLIMEPIRIDE TAB. 1MG (TYK) [Suspect]
     Active Substance: GLIMEPIRIDE
     Indication: DIABETES MELLITUS
     Dosage: START DATE UNKNOWN
     Route: 048
     Dates: end: 20141021
  5. GLIMEPIRIDE TAB. 1MG (TYK) [Suspect]
     Active Substance: GLIMEPIRIDE
     Dosage: .5 MILLIGRAM DAILY;
     Route: 048
     Dates: start: 20141025, end: 20141110
  6. MOSAPRIDE CITRATE TAB 5MG [Concomitant]
     Indication: PRODUCT USED FOR UNKNOWN INDICATION
     Dosage: DOSAGE AND FREQUENCY UNKNOWN
     Route: 048
  7. BICALUTAMIDE TAB. 80MG ^NICHIIKO^ [Concomitant]
     Indication: PRODUCT USED FOR UNKNOWN INDICATION
     Dosage: DOSAGE AND FREQUENCY UNKNOWN
     Route: 048
  8. PROTERNOL S TAB. 15MG [Concomitant]
     Indication: PRODUCT USED FOR UNKNOWN INDICATION
     Dosage: DOSAGE AND FREQUENCY UNKNOWN
     Route: 048
  9. GLIMEPIRIDE TAB. 1MG (TYK) [Suspect]
     Active Substance: GLIMEPIRIDE
     Dosage: .25 MILLIGRAM DAILY;
     Route: 048
     Dates: start: 20141022, end: 20141024

REACTIONS (5)
  - Liver disorder [Recovered/Resolved]
  - Gamma-glutamyltransferase increased [None]
  - Alanine aminotransferase increased [None]
  - Blood lactate dehydrogenase increased [None]
  - Aspartate aminotransferase increased [None]

NARRATIVE: CASE EVENT DATE: 20141107
